FAERS Safety Report 4905529-5 (Version None)
Quarter: 2006Q1

REPORT INFORMATION
  Report Type: 
  Country: None (occurrence: None)
  Receive Date: 20060208
  Receipt Date: 20060130
  Transmission Date: 20060701
  Serious: Yes (Death)
  Sender: FDA-Public Use
  Company Number: AU-BRISTOL-MYERS SQUIBB COMPANY-13274956

PATIENT

DRUGS (2)
  1. GATIFLOXACIN [Suspect]
  2. WARFARIN [Interacting]

REACTIONS (2)
  - DEATH [None]
  - DRUG INTERACTION [None]
